FAERS Safety Report 10439289 (Version 1)
Quarter: 2014Q3

REPORT INFORMATION
  Report Type: Spontaneous
  Country: FI (occurrence: None)
  Receive Date: 20140905
  Receipt Date: 20140905
  Transmission Date: 20150326
  Serious: Yes (Death)
  Sender: FDA-Public Use
  Company Number: 2513038

PATIENT
  Age: 63 Year
  Sex: Female

DRUGS (14)
  1. GRANISETRON [Concomitant]
     Active Substance: GRANISETRON
  2. MOVICOL [Concomitant]
     Active Substance: POLYETHYLENE GLYCOL 3350\POTASSIUM CHLORIDE\SODIUM BICARBONATE\SODIUM CHLORIDE
  3. CETIMAX [Concomitant]
  4. CAPECITABINE [Suspect]
     Active Substance: CAPECITABINE
     Indication: BREAST CANCER METASTATIC
     Dosage: 3000 MG MILLIGRAM(S), 1 DAY
     Route: 048
     Dates: start: 20140729, end: 20140809
  5. DEXAMETHASONE. [Concomitant]
     Active Substance: DEXAMETHASONE
  6. LOPEX [Concomitant]
  7. TAZOCIN [Concomitant]
     Active Substance: PIPERACILLIN SODIUM\TAZOBACTAM SODIUM
  8. TOBRAMYCIN [Concomitant]
     Active Substance: TOBRAMYCIN
  9. TRIKOZOL [Concomitant]
  10. PAMOL [Concomitant]
     Active Substance: ACETAMINOPHEN
  11. NEULASTA [Concomitant]
     Active Substance: PEGFILGRASTIM
  12. DEXAMETHASONE. [Concomitant]
     Active Substance: DEXAMETHASONE
  13. DIFLUCAN [Concomitant]
     Active Substance: FLUCONAZOLE
  14. DOCETAXEL [Suspect]
     Active Substance: DOCETAXEL
     Indication: BREAST CANCER METASTATIC
     Dosage: 130 MG MILLIGRAM(S), 1 DAY
     Route: 042
     Dates: start: 20140729, end: 20140729

REACTIONS (17)
  - Oedema [None]
  - Peripheral coldness [None]
  - White blood cell count decreased [None]
  - Hypophagia [None]
  - Neutropenia [None]
  - Pyrexia [None]
  - Hypokalaemia [None]
  - Metabolic acidosis [None]
  - Platelet count decreased [None]
  - Colitis [None]
  - Oxygen saturation decreased [None]
  - Cardiac arrest [None]
  - Nausea [None]
  - Abdominal pain [None]
  - Vomiting [None]
  - Blood sodium decreased [None]
  - Diarrhoea [None]

NARRATIVE: CASE EVENT DATE: 20140809
